FAERS Safety Report 6244059-8 (Version None)
Quarter: 2009Q2

REPORT INFORMATION
  Report Type: 
  Country: None (occurrence: None)
  Receive Date: 20090623
  Receipt Date: 20090623
  Transmission Date: 20091009
  Serious: Yes (Hospitalization)
  Sender: FDA-Public Use
  Company Number: None

PATIENT
  Age: 60 Year
  Sex: Female
  Weight: 73 kg

DRUGS (19)
  1. THYMOGLOBULIN [Suspect]
     Indication: IMMUNOSUPPRESSION
     Dosage: 125MG IV
     Route: 042
     Dates: start: 20090317
  2. THYMOGLOBULIN [Suspect]
     Indication: IMMUNOSUPPRESSION
     Dosage: 125MG IV
     Route: 042
     Dates: start: 20090318
  3. THYMOGLOBULIN [Suspect]
     Indication: IMMUNOSUPPRESSION
     Dosage: 125MG IV
     Route: 042
     Dates: start: 20090319
  4. THYMOGLOBULIN [Suspect]
     Indication: IMMUNOSUPPRESSION
     Dosage: 125MG IV
     Route: 042
     Dates: start: 20090323
  5. THYMOGLOBULIN [Suspect]
     Indication: IMMUNOSUPPRESSION
     Dosage: 125MG IV
     Route: 042
     Dates: start: 20090324
  6. THYMOGLOBULIN [Suspect]
     Indication: IMMUNOSUPPRESSION
     Dosage: 125MG IV
     Route: 042
     Dates: start: 20090326
  7. CELLCEPT [Concomitant]
  8. PREDNISONE [Concomitant]
  9. TACROLIMUS [Concomitant]
  10. VALGANCICLOVIR HCL [Concomitant]
  11. BACTRIM [Concomitant]
  12. NYSTATIN [Concomitant]
  13. PRAVASTATIN [Concomitant]
  14. DOCUSATE [Concomitant]
  15. M.V.I. [Concomitant]
  16. RANITIDINE [Concomitant]
  17. HYDROMORPHONE [Concomitant]
  18. CARVEDILOL [Concomitant]
  19. NIFEDIPINE [Concomitant]

REACTIONS (4)
  - BLOOD CREATININE INCREASED [None]
  - INFUSION RELATED REACTION [None]
  - PRURITUS [None]
  - RASH [None]
